FAERS Safety Report 17724344 (Version 1)
Quarter: 2020Q2

REPORT INFORMATION
  Report Type: Spontaneous
  Country: US (occurrence: US)
  Receive Date: 20200429
  Receipt Date: 20200429
  Transmission Date: 20200714
  Serious: No
  Sender: FDA-Public Use
  Company Number: US-PERRIGO-20US001894

PATIENT
  Age: 36 Year
  Sex: Male

DRUGS (2)
  1. NAPROXEN SODIUM-PSEUDOEPHEDRINE HYDROCHLORIDE [Suspect]
     Active Substance: NAPROXEN SODIUM\PSEUDOEPHEDRINE HYDROCHLORIDE
     Indication: NASOPHARYNGITIS
  2. NAPROXEN SODIUM-PSEUDOEPHEDRINE HYDROCHLORIDE [Suspect]
     Active Substance: NAPROXEN SODIUM\PSEUDOEPHEDRINE HYDROCHLORIDE
     Indication: HYPERSENSITIVITY
     Dosage: 1 TABLET, QD
     Route: 048
     Dates: start: 20200129, end: 20200130

REACTIONS (4)
  - Aptyalism [Unknown]
  - Expired product administered [Recovered/Resolved]
  - Dry mouth [Unknown]
  - Tongue dry [Unknown]

NARRATIVE: CASE EVENT DATE: 20200129
